FAERS Safety Report 6919523-6 (Version None)
Quarter: 2010Q3

REPORT INFORMATION
  Report Type: 
  Country: None (occurrence: None)
  Receive Date: 20100810
  Receipt Date: 20100810
  Transmission Date: 20110219
  Serious: No
  Sender: FDA-Public Use
  Company Number: None

PATIENT
  Sex: Female
  Weight: 87.6 kg

DRUGS (3)
  1. RITUXIMAB (MOAB C2B8 ANTI CD20, CHIMERIC) [Suspect]
     Dosage: 750 MG
  2. CYCLOPHOSPHAMIDE [Suspect]
     Dosage: 1200 MG
  3. PENTOSTATIN [Suspect]
     Dosage: 8 MG

REACTIONS (5)
  - DYSPNOEA [None]
  - HYPOTENSION [None]
  - HYPOXIA [None]
  - THROAT TIGHTNESS [None]
  - WHEEZING [None]
